FAERS Safety Report 7464077-1 (Version None)
Quarter: 2011Q2

REPORT INFORMATION
  Report Type: 
  Country: None (occurrence: None)
  Receive Date: 20110506
  Receipt Date: 20110427
  Transmission Date: 20111010
  Serious: Yes (Hospitalization, Other)
  Sender: FDA-Public Use
  Company Number: US-ASTRAZENECA-2011SE24427

PATIENT
  Age: 56 Year
  Sex: Male
  Weight: 110.2 kg

DRUGS (14)
  1. GLIMAPRIDE [Concomitant]
     Indication: DIABETES MELLITUS
     Route: 048
  2. JANUVIA [Concomitant]
     Indication: DIABETES MELLITUS
     Route: 048
  3. GLYBURIDE [Concomitant]
     Indication: DIABETES MELLITUS
     Route: 048
  4. METFORMIN [Concomitant]
     Indication: DIABETES MELLITUS
     Route: 048
  5. CLONAZEPAM [Concomitant]
     Route: 048
  6. LEVOTHYROXINE SODIUM [Concomitant]
     Indication: THYROID DISORDER
     Route: 048
  7. LISINOPRIL [Concomitant]
     Indication: HYPERTENSION
     Route: 048
  8. CITALOPRAM [Concomitant]
     Route: 048
  9. PRAVASTATIN [Concomitant]
     Indication: BLOOD CHOLESTEROL INCREASED
     Route: 048
  10. ASPIRIN [Concomitant]
     Route: 048
  11. SEROQUEL [Suspect]
     Route: 048
  12. TRAZODONE HCL [Concomitant]
     Route: 048
  13. SEROQUEL [Suspect]
     Indication: BIPOLAR DISORDER
     Route: 048
     Dates: start: 20030101, end: 20110401
  14. LITHIUM [Concomitant]
     Indication: BIPOLAR DISORDER
     Route: 048

REACTIONS (6)
  - DRUG DEPENDENCE [None]
  - AMNESIA [None]
  - INJURY [None]
  - ROAD TRAFFIC ACCIDENT [None]
  - BIPOLAR DISORDER [None]
  - ROTATOR CUFF REPAIR [None]
